FAERS Safety Report 14670877 (Version 1)
Quarter: 2018Q1

REPORT INFORMATION
  Report Type: Spontaneous
  Country: US (occurrence: US)
  Receive Date: 20180321
  Receipt Date: 20180321
  Transmission Date: 20180509
  Serious: Yes (Life-Threatening, Hospitalization)
  Sender: FDA-Public Use
  Company Number: None

PATIENT
  Age: 35 Year
  Sex: Male

DRUGS (1)
  1. BUPROPION. [Suspect]
     Active Substance: BUPROPION
     Indication: DEPRESSION
     Dosage: 150 MG AM PO
     Route: 048
     Dates: start: 20180117, end: 20180121

REACTIONS (2)
  - Anxiety [None]
  - Chest pain [None]

NARRATIVE: CASE EVENT DATE: 20180121
